FAERS Safety Report 21272705 (Version 4)
Quarter: 2022Q3

REPORT INFORMATION
  Report Type: Spontaneous
  Country: AU (occurrence: None)
  Receive Date: 20220831
  Receipt Date: 20220923
  Transmission Date: 20221026
  Serious: Yes (Other)
  Sender: FDA-Public Use
  Company Number: AU-ROCHE-3170004

PATIENT
  Sex: Male

DRUGS (11)
  1. RITUXIMAB [Suspect]
     Active Substance: RITUXIMAB
     Indication: Follicular lymphoma
     Dosage: 2L TREATMENT (R-CHOP CHEMOTHERAPY FOLLOWED BY MAINTENANCE R ON TRIAL)
     Route: 065
     Dates: start: 20070601, end: 20081001
  2. RITUXIMAB [Suspect]
     Active Substance: RITUXIMAB
     Dosage: 3L TREATMENT (FCR X 4)
     Route: 065
     Dates: start: 20110201, end: 20120701
  3. RITUXIMAB [Suspect]
     Active Substance: RITUXIMAB
     Dosage: RITUXIMAB MONOTHERAPY-4 DOSES
     Route: 065
     Dates: start: 20220302, end: 20220323
  4. VENETOCLAX [Suspect]
     Active Substance: VENETOCLAX
     Indication: Follicular lymphoma
     Dosage: 4L TREATMENT (VENETOCLAX ON TRIAL)
     Route: 065
     Dates: start: 20130101, end: 20160401
  5. CYCLOPHOSPHAMIDE [Suspect]
     Active Substance: CYCLOPHOSPHAMIDE
     Indication: Follicular lymphoma
     Dosage: 1L TREATMENT (CVP X 3 COMPLETED MARCH 2001 (PRE RITUXIMAB) WITH IFRT)
     Route: 065
     Dates: start: 20010101, end: 20010401
  6. CYCLOPHOSPHAMIDE [Suspect]
     Active Substance: CYCLOPHOSPHAMIDE
     Dosage: 3L TREATMENT (FCR X 4)
     Route: 065
     Dates: start: 20110201, end: 20120701
  7. PREDNISOLONE [Suspect]
     Active Substance: PREDNISOLONE
     Indication: Follicular lymphoma
     Route: 065
     Dates: start: 20010101, end: 20010401
  8. VINCRISTINE [Suspect]
     Active Substance: VINCRISTINE
     Indication: Follicular lymphoma
     Dosage: 1L TREATMENT (CVP X 3 COMPLETED MARCH 2001 (PRE RITUXIMAB) WITH IFRT)
     Route: 065
     Dates: start: 20010101, end: 20010401
  9. CYCLOPHOSPHAMIDE\DOXORUBICIN\PREDNISONE\VINCRISTINE [Suspect]
     Active Substance: CYCLOPHOSPHAMIDE\DOXORUBICIN\PREDNISONE\VINCRISTINE
     Indication: Follicular lymphoma
     Dosage: 2L TREATMENT (R-CHOP CHEMOTHERAPY FOLLOWED BY MAINTENANCE R ON TRIAL)
     Route: 065
     Dates: start: 20070601, end: 20081001
  10. FLUDARABINE [Suspect]
     Active Substance: FLUDARABINE PHOSPHATE
     Indication: Follicular lymphoma
     Dosage: 3L TREATMENT (FCR X 4)
     Route: 065
     Dates: start: 20110201, end: 20120701
  11. TAZEMETOSTAT [Suspect]
     Active Substance: TAZEMETOSTAT
     Indication: Follicular lymphoma
     Dosage: 5L TREATMENT (TAZEMETOSTAT ON TRIAL)
     Route: 065
     Dates: start: 20160501, end: 20210301

REACTIONS (1)
  - Disease progression [Unknown]
